FAERS Safety Report 9626779 (Version 1)
Quarter: 2013Q4

REPORT INFORMATION
  Report Type: Spontaneous
  Country: FR (occurrence: FR)
  Receive Date: 20131016
  Receipt Date: 20131016
  Transmission Date: 20140711
  Serious: Yes (Hospitalization)
  Sender: FDA-Public Use
  Company Number: FR-GLAXOSMITHKLINE-B0928074A

PATIENT
  Age: 76 Year
  Sex: Male
  Weight: 89 kg

DRUGS (6)
  1. ARIXTRA [Suspect]
     Indication: PORTAL VEIN THROMBOSIS
     Dosage: 7.5MG PER DAY
     Route: 058
     Dates: start: 2010, end: 20130729
  2. AVLOCARDYL [Concomitant]
     Dosage: 160MG PER DAY
  3. OLMETEC [Concomitant]
     Dosage: 20MG PER DAY
  4. LANTUS [Concomitant]
     Dosage: 48IU AT NIGHT
  5. REPAGLINIDE [Concomitant]
  6. MIOREL [Concomitant]
     Dosage: 8MG PER DAY

REACTIONS (6)
  - Haemorrhagic disorder [Recovered/Resolved]
  - Melaena [Unknown]
  - Haematuria [Unknown]
  - Mucosal haemorrhage [Unknown]
  - Vessel puncture site haematoma [Unknown]
  - Incorrect drug administration duration [Unknown]
